FAERS Safety Report 14269133 (Version 1)
Quarter: 2017Q4

REPORT INFORMATION
  Report Type: Spontaneous
  Country: DE (occurrence: DE)
  Receive Date: 20171211
  Receipt Date: 20171211
  Transmission Date: 20180321
  Serious: Yes (Other)
  Sender: FDA-Public Use
  Company Number: DE-OTSUKA-DJ20072411

PATIENT

DRUGS (5)
  1. FLUANXOL DEPOT [Suspect]
     Active Substance: FLUPENTIXOL DECANOATE
     Route: 048
  2. FLUPENTIXOL [Suspect]
     Active Substance: FLUPENTIXOL
     Dosage: UNK
     Route: 048
  3. MELNEURIN [Suspect]
     Active Substance: MELPERONE HYDROCHLORIDE
     Route: 048
  4. SOLIAN [Suspect]
     Active Substance: AMISULPRIDE
     Route: 048
  5. ABILIFY [Suspect]
     Active Substance: ARIPIPRAZOLE
     Route: 048

REACTIONS (1)
  - Electrocardiogram QT prolonged [Unknown]
